FAERS Safety Report 8859932 (Version 2)
Quarter: 2012Q4

REPORT INFORMATION
  Report Type: Report from Study
  Country: TR (occurrence: TR)
  Receive Date: 20121025
  Receipt Date: 20121127
  Transmission Date: 20130627
  Serious: Yes (Hospitalization, Other)
  Sender: FDA-Public Use
  Company Number: TR-ABBOTT-12P-161-0996436-00

PATIENT
  Age: 39 None
  Sex: Male
  Weight: 82 kg

DRUGS (3)
  1. HUMIRA [Suspect]
     Indication: PSORIATIC ARTHROPATHY
     Route: 058
     Dates: start: 20081220
  2. UNKNOWN ANTIHYPERTENSIVE AGENT [Concomitant]
     Indication: PRODUCT USED FOR UNKNOWN INDICATION
  3. ANTIAGGREGANT AGENT [Concomitant]
     Indication: PRODUCT USED FOR UNKNOWN INDICATION

REACTIONS (8)
  - Aspartate aminotransferase increased [Recovered/Resolved]
  - Chest pain [Recovered/Resolved]
  - Myocardial infarction [Recovered/Resolved]
  - Alanine aminotransferase increased [Recovered/Resolved]
  - Coronary artery occlusion [Unknown]
  - Hypercholesterolaemia [Unknown]
  - Hypertension [Unknown]
  - Hyperlipidaemia [Unknown]
